FAERS Safety Report 8849293 (Version 2)
Quarter: 2012Q4

REPORT INFORMATION
  Report Type: 
  Country: JP (occurrence: JP)
  Receive Date: 20121019
  Receipt Date: 20121205
  Transmission Date: 20130627
  Serious: Yes (Other)
  Sender: FDA-Public Use
  Company Number: JP-009507513-1210JPN006771

PATIENT
  Age: 36 Year
  Sex: Female
  Weight: 61 kg

DRUGS (8)
  1. PEGINTRON [Suspect]
     Indication: CHRONIC HEPATITIS C
     Dosage: 1.5 Microgram per kilogram, qw
     Route: 058
  2. REBETOL [Suspect]
     Indication: CHRONIC HEPATITIS C
     Dosage: 800 mg, qd
     Dates: end: 20120910
  3. REBETOL [Suspect]
     Dosage: 600 mg, qd
     Route: 048
     Dates: start: 20120911, end: 20121013
  4. REBETOL [Suspect]
     Dosage: 400 mg, qd
     Route: 048
     Dates: start: 20121016, end: 20121029
  5. REBETOL [Suspect]
     Dosage: 200 mg, qd
     Route: 048
     Dates: start: 20121030
  6. TELAVIC [Suspect]
     Indication: CHRONIC HEPATITIS C
     Dosage: 2250 mg qd
     Route: 048
     Dates: start: 20120803, end: 20120923
  7. TELAVIC [Suspect]
     Dosage: 1500 mg, qd
     Route: 048
     Dates: start: 20120924, end: 20121005
  8. ZYLORIC [Concomitant]
     Dosage: 200 mg, UNK
     Route: 048
     Dates: start: 20120808

REACTIONS (2)
  - Hyperuricaemia [Recovered/Resolved]
  - Bone marrow failure [Not Recovered/Not Resolved]
